FAERS Safety Report 6188051-0 (Version None)
Quarter: 2009Q2

REPORT INFORMATION
  Report Type: 
  Country: None (occurrence: None)
  Receive Date: 20090511
  Receipt Date: 20090427
  Transmission Date: 20091009
  Serious: Yes (Life-Threatening, Hospitalization, Disabling, Other)
  Sender: FDA-Public Use
  Company Number: 2009AL002746

PATIENT
  Age: 57 Year
  Sex: Female

DRUGS (9)
  1. CITALORPAM HYDROBROMIDE [Suspect]
     Indication: DEPRESSION
     Dosage: 20 MG; PO
     Route: 048
     Dates: start: 20090202, end: 20090205
  2. RAMIPRIL        CAPSULES, 2.5MG (AELLC) [Suspect]
     Indication: HYPERTENSION
     Dosage: 2.5 MG; QD; PO
     Route: 048
     Dates: start: 20060101, end: 20090205
  3. METRONIDAZOLE [Concomitant]
  4. BENDROFLUMETHIAZIDE [Concomitant]
  5. ACETAMINOPHEN [Concomitant]
  6. MAGNESIUM SULFATE [Concomitant]
  7. MENOPACE [Concomitant]
  8. GARLIC OIL ESSENTIAL [Concomitant]
  9. OREGANO OIL [Concomitant]

REACTIONS (6)
  - BLOOD SODIUM DECREASED [None]
  - CENTRAL PONTINE MYELINOLYSIS [None]
  - CONVULSION [None]
  - DRUG INTERACTION [None]
  - FEELING HOT [None]
  - THIRST [None]
